FAERS Safety Report 7709166-9 (Version None)
Quarter: 2011Q3

REPORT INFORMATION
  Report Type: 
  Country: None (occurrence: None)
  Receive Date: 20110825
  Receipt Date: 20110817
  Transmission Date: 20111222
  Serious: Yes (Hospitalization)
  Sender: FDA-Public Use
  Company Number: PHHY2011DE06097

PATIENT
  Sex: Female
  Weight: 80 kg

DRUGS (6)
  1. AFINITOR [Suspect]
     Dosage: 5 MG, QD
     Route: 048
     Dates: start: 20110124, end: 20110301
  2. TORSEMIDE [Concomitant]
     Indication: HYPERTENSION
     Dosage: 5 MG, PER DAY
     Route: 048
  3. BISOPROLOL FUMARATE [Concomitant]
     Indication: HYPERTENSION
     Dosage: UNK UKN, UNK
     Route: 048
  4. AFINITOR [Suspect]
     Indication: NEUROENDOCRINE TUMOUR
     Dosage: 10 MG, QD
     Route: 048
     Dates: start: 20101001, end: 20110123
  5. METFORMIN HCL [Concomitant]
     Indication: DIABETES MELLITUS
     Dosage: UNK UKN, UNK
     Route: 048
  6. SANDOSTATIN LAR [Suspect]
     Indication: NEUROENDOCRINE TUMOUR
     Dosage: 20 MG, EVERY 28 DAYS
     Route: 030
     Dates: start: 20101001

REACTIONS (4)
  - PANCREATIC ABSCESS [None]
  - PLEURAL EFFUSION [None]
  - PANCREATITIS ACUTE [None]
  - ASCITES [None]
